FAERS Safety Report 16243137 (Version 1)
Quarter: 2019Q2

REPORT INFORMATION
  Report Type: Spontaneous
  Country: BR (occurrence: BR)
  Receive Date: 20190426
  Receipt Date: 20190426
  Transmission Date: 20190711
  Serious: Yes (Hospitalization, Other)
  Sender: FDA-Public Use
  Company Number: BR-TORRENT-00004934

PATIENT
  Age: 81 Year
  Sex: Male
  Weight: 55 kg

DRUGS (1)
  1. EPEZ [Suspect]
     Active Substance: DONEPEZIL HYDROCHLORIDE
     Indication: DEMENTIA ALZHEIMER^S TYPE
     Dosage: ONE TABLET DAILY
     Route: 048
     Dates: start: 2012

REACTIONS (11)
  - Movement disorder [Unknown]
  - Facial bones fracture [Unknown]
  - Myalgia [Unknown]
  - Screaming [Unknown]
  - Agitation [Unknown]
  - Aggression [Unknown]
  - Insomnia [Unknown]
  - Dysuria [Unknown]
  - Fall [Unknown]
  - Constipation [Unknown]
  - Drooling [Unknown]

NARRATIVE: CASE EVENT DATE: 201812
